FAERS Safety Report 5486937-3 (Version None)
Quarter: 2007Q4

REPORT INFORMATION
  Report Type: 
  Country: None (occurrence: None)
  Receive Date: 20071016
  Receipt Date: 20071011
  Transmission Date: 20080405
  Serious: Yes (Other)
  Sender: FDA-Public Use
  Company Number: GB-BRISTOL-MYERS SQUIBB COMPANY-13938089

PATIENT
  Age: 39 Year
  Sex: Female

DRUGS (3)
  1. VIDEX [Suspect]
  2. LAMIVUDINE [Concomitant]
     Dates: start: 20011201
  3. NEVIRAPINE [Concomitant]
     Dates: start: 20011201

REACTIONS (1)
  - MITOCHONDRIAL TOXICITY [None]
